FAERS Safety Report 5029522-X (Version None)
Quarter: 2006Q2

REPORT INFORMATION
  Report Type: 
  Country: None (occurrence: None)
  Receive Date: 20060620
  Receipt Date: 20051121
  Transmission Date: 20061013
  Serious: No
  Sender: FDA-Public Use
  Company Number: US-GLAXOSMITHKLINE-A0583012A

PATIENT
  Age: 47 Year
  Sex: Female

DRUGS (2)
  1. ZYBAN [Suspect]
     Route: 048
  2. COMMIT [Suspect]
     Dosage: 4MG SEE DOSAGE TEXT
     Route: 002
     Dates: start: 20040521

REACTIONS (2)
  - DRUG ABUSER [None]
  - EMOTIONAL DISORDER [None]
